FAERS Safety Report 6791351-4 (Version None)
Quarter: 2010Q2

REPORT INFORMATION
  Report Type: 
  Country: None (occurrence: None)
  Receive Date: 20100624
  Receipt Date: 20100524
  Transmission Date: 20101027
  Serious: No
  Sender: FDA-Public Use
  Company Number: US-BAYER-201024145NA

PATIENT
  Age: 60 Year
  Sex: Male
  Weight: 63 kg

DRUGS (4)
  1. ULTRAVIST 150 [Suspect]
     Indication: COMPUTERISED TOMOGRAM ABDOMEN
     Dosage: TOTAL DAILY DOSE: 94 ML  UNIT DOSE: 300 ML
     Route: 042
     Dates: start: 20100524, end: 20100524
  2. IRON [Concomitant]
  3. IMODIUM [Concomitant]
  4. READI-CAT [Concomitant]
     Route: 048
     Dates: start: 20100524, end: 20100524

REACTIONS (1)
  - URTICARIA [None]
